FAERS Safety Report 24841623 (Version 1)
Quarter: 2025Q1

REPORT INFORMATION
  Report Type: Spontaneous
  Country: FR (occurrence: FR)
  Receive Date: 20250114
  Receipt Date: 20250114
  Transmission Date: 20250408
  Serious: Yes (Death)
  Sender: PFIZER
  Company Number: FR-PFIZER INC-PV202500005132

PATIENT
  Age: 80 Year

DRUGS (1)
  1. ELRANATAMAB [Suspect]
     Active Substance: ELRANATAMAB
     Indication: Plasma cell myeloma
     Dates: start: 20240326

REACTIONS (2)
  - General physical health deterioration [Fatal]
  - COVID-19 [Unknown]

NARRATIVE: CASE EVENT DATE: 20240403
